FAERS Safety Report 23035449 (Version 3)
Quarter: 2023Q4

REPORT INFORMATION
  Report Type: Report from Study
  Country: BR (occurrence: BR)
  Receive Date: 20231006
  Receipt Date: 20231222
  Transmission Date: 20240109
  Serious: Yes (Other)
  Sender: FDA-Public Use
  Company Number: BR-CELLTRION INC.-2023BR019079

PATIENT

DRUGS (2)
  1. INFLIXIMAB [Suspect]
     Active Substance: INFLIXIMAB
     Indication: Rheumatoid arthritis
     Dosage: 3 AMPOULES EVERY MONTHS, MONTHLY
     Route: 042
     Dates: start: 20221212
  2. INFLIXIMAB [Suspect]
     Active Substance: INFLIXIMAB
     Dosage: UNK
     Dates: start: 20230302

REACTIONS (5)
  - Dementia Alzheimer^s type [Unknown]
  - Secondary immunodeficiency [Unknown]
  - Pain [Unknown]
  - Memory impairment [Unknown]
  - Intentional dose omission [Unknown]
